FAERS Safety Report 18577644 (Version 1)
Quarter: 2020Q4

REPORT INFORMATION
  Report Type: Spontaneous
  Country: NL (occurrence: NL)
  Receive Date: 20201203
  Receipt Date: 20201203
  Transmission Date: 20210114
  Serious: Yes (Other)
  Sender: FDA-Public Use
  Company Number: NL-AUROBINDO-AUR-APL-2020-059078

PATIENT
  Sex: Female
  Weight: 64 kg

DRUGS (1)
  1. PAROXETIN FILM-COATED TABLET 20MG [Suspect]
     Active Substance: PAROXETINE
     Indication: PANIC DISORDER
     Dosage: 20 MILLIGRAM, ONCE A DAY
     Route: 065
     Dates: start: 2004

REACTIONS (1)
  - Mental impairment [Not Recovered/Not Resolved]
